FAERS Safety Report 9091319 (Version 1)
Quarter: 2013Q1

REPORT INFORMATION
  Report Type: Spontaneous
  Country: US (occurrence: US)
  Receive Date: 20130201
  Receipt Date: 20130201
  Transmission Date: 20140127
  Serious: No
  Sender: FDA-Public Use
  Company Number: US-PFIZER INC-2013037061

PATIENT
  Sex: Female

DRUGS (1)
  1. TOVIAZ [Suspect]
     Dosage: 4 MG, 1X/DAY (ONE 4MG TABLET ONE DAY ALTERNATING WITH TWO 4 MG TABLETS THE NEXT)

REACTIONS (1)
  - Drug ineffective [Unknown]
